FAERS Safety Report 19007192 (Version 1)
Quarter: 2021Q1

REPORT INFORMATION
  Report Type: Spontaneous
  Country: US (occurrence: US)
  Receive Date: 20210315
  Receipt Date: 20210315
  Transmission Date: 20210420
  Serious: Yes (Life-Threatening)
  Sender: FDA-Public Use
  Company Number: None

PATIENT
  Age: 30 Year
  Sex: Female
  Weight: 92.25 kg

DRUGS (2)
  1. METHYLPHENIDATE ER 54 TAB [Suspect]
     Active Substance: METHYLPHENIDATE
     Indication: ATTENTION DEFICIT HYPERACTIVITY DISORDER
     Dosage: ?          QUANTITY:1 TABLET(S);?
     Route: 048
     Dates: start: 20210310
  2. BODESONIDE AND FORMOTEROL INHALER 160/4.5 [Concomitant]

REACTIONS (6)
  - Product substitution issue [None]
  - Chest pain [None]
  - Dyspnoea [None]
  - Decreased appetite [None]
  - Headache [None]
  - Heart rate increased [None]

NARRATIVE: CASE EVENT DATE: 20210312
